FAERS Safety Report 18089377 (Version 1)
Quarter: 2020Q3

REPORT INFORMATION
  Report Type: Report from Study
  Country: None (occurrence: US)
  Receive Date: 20200729
  Receipt Date: 20200729
  Transmission Date: 20201103
  Serious: Yes (Death, Hospitalization)
  Sender: FDA-Public Use
  Company Number: US-ABBVIE-19P-163-2684469-00

PATIENT
  Age: 69 Year
  Sex: Male

DRUGS (8)
  1. VENETOCLAX. [Suspect]
     Active Substance: VENETOCLAX
     Dosage: DAYS 9?11
     Route: 048
     Dates: start: 20190216, end: 20190218
  2. PREDNISONE. [Concomitant]
     Active Substance: PREDNISONE
     Indication: DIFFUSE LARGE B-CELL LYMPHOMA
     Dosage: ON 14/FEB/2019,HE RECEIVED THE MOST RECENT DOSE OF PREDNISONE 100 MG PRIOR TO EVENT ONSET
     Route: 048
     Dates: start: 20190208
  3. VENETOCLAX. [Suspect]
     Active Substance: VENETOCLAX
     Dosage: DAYS 13? 15
     Route: 048
     Dates: start: 20190213, end: 20190215
  4. IBRUTINIB [Suspect]
     Active Substance: IBRUTINIB
     Indication: DIFFUSE LARGE B-CELL LYMPHOMA
     Dosage: ON 21/FEB/2019, HE RECEIVED THE MOST RECENT DOSE OF IBRUTINIB 560MG PRIOR TO EVENT ONSET.
     Route: 048
     Dates: start: 20190208
  5. OBINUTUZUMAB. [Concomitant]
     Active Substance: OBINUTUZUMAB
     Indication: DIFFUSE LARGE B-CELL LYMPHOMA
     Dosage: ON 09/FEB/2019,RECEIVED THE MOST RECENT DOSE OF OBINUTUZUMAB 1000 MG PRIOR TO EVENT ONSET
     Route: 042
     Dates: start: 20190208
  6. VENETOCLAX. [Suspect]
     Active Substance: VENETOCLAX
     Indication: DIFFUSE LARGE B-CELL LYMPHOMA
     Dosage: D2 AND D5
     Route: 048
     Dates: start: 20190209, end: 20190212
  7. LENALIDOMIDE [Concomitant]
     Active Substance: LENALIDOMIDE
     Indication: DIFFUSE LARGE B-CELL LYMPHOMA
     Dosage: ON 21/FEB/2019, RECEIVED THE MOST RECENT DOSE OF LENALIDOMIDE 150 MG PRIOR TO EVENT ONSET
     Route: 048
     Dates: start: 20190208
  8. VENETOCLAX. [Suspect]
     Active Substance: VENETOCLAX
     Dosage: DAYS 12?14
     Route: 048
     Dates: start: 20190219

REACTIONS (2)
  - Neutrophil count decreased [Recovered/Resolved]
  - Disease progression [Fatal]

NARRATIVE: CASE EVENT DATE: 20190221
